FAERS Safety Report 4575784-2 (Version None)
Quarter: 2005Q1

REPORT INFORMATION
  Report Type: 
  Country: None (occurrence: None)
  Receive Date: 20050128
  Receipt Date: 20050128
  Transmission Date: 20050727
  Serious: Yes (Other)
  Sender: FDA-Public Use
  Company Number: None

PATIENT
  Sex: Female

DRUGS (2)
  1. HYDROCODONE /APAP 5/500 [Suspect]
     Indication: ABDOMINAL PAIN
     Dosage: ONE Q 4H PRN
  2. HYDROCODONE /APAP 5/500 [Suspect]
     Indication: ARTHRALGIA
     Dosage: ONE Q 4H PRN

REACTIONS (8)
  - DIZZINESS [None]
  - FEELING ABNORMAL [None]
  - GASTRIC DISORDER [None]
  - HEADACHE [None]
  - NAUSEA [None]
  - PRURITUS [None]
  - RASH [None]
  - TINNITUS [None]
